FAERS Safety Report 10925152 (Version 2)
Quarter: 2015Q2

REPORT INFORMATION
  Report Type: Spontaneous
  Country: US (occurrence: US)
  Receive Date: 20150318
  Receipt Date: 20150524
  Transmission Date: 20150821
  Serious: No
  Sender: FDA-Public Use
  Company Number: US-JNJFOC-20130806716

PATIENT
  Age: 70 Year
  Sex: Female
  Weight: 107.96 kg

DRUGS (2)
  1. NIZORAL A-D [Suspect]
     Active Substance: KETOCONAZOLE
     Indication: THERAPEUTIC PROCEDURE
     Dosage: DIME TO NICKEL SIZE AMOUNT
     Route: 061
  2. NIZORAL A-D [Suspect]
     Active Substance: KETOCONAZOLE
     Route: 061

REACTIONS (2)
  - Drug administration error [Unknown]
  - Therapeutic response unexpected [Unknown]
